FAERS Safety Report 19485885 (Version 2)
Quarter: 2021Q3

REPORT INFORMATION
  Report Type: Spontaneous
  Country: FR (occurrence: FR)
  Receive Date: 20210702
  Receipt Date: 20210719
  Transmission Date: 20211014
  Serious: No
  Sender: FDA-Public Use
  Company Number: FR-PFIZER INC-2021747781

PATIENT
  Age: 68 Year
  Sex: Male

DRUGS (2)
  1. OXALIPLATIN. [Suspect]
     Active Substance: OXALIPLATIN
     Indication: PLEURAL MESOTHELIOMA MALIGNANT
     Dosage: 130 MG/M2, PER CYCLE
  2. RALTITREXED DISODIUM [Suspect]
     Active Substance: RALTITREXED
     Indication: PLEURAL MESOTHELIOMA MALIGNANT
     Dosage: 3 MG/M2, PER CYCLE

REACTIONS (1)
  - Haematotoxicity [Unknown]
